FAERS Safety Report 20362673 (Version 1)
Quarter: 2022Q1

REPORT INFORMATION
  Report Type: Spontaneous
  Country: US (occurrence: None)
  Receive Date: 20220120
  Receipt Date: 20220120
  Transmission Date: 20220423
  Serious: Yes (Other)
  Sender: FDA-Public Use
  Company Number: None

PATIENT
  Age: 39 Year
  Sex: Female
  Weight: 96.75 kg

DRUGS (1)
  1. MOXIFLOXACIN [Suspect]
     Active Substance: MOXIFLOXACIN
     Indication: Infection
     Dosage: FREQUENCY : DAILY;?
     Route: 048

REACTIONS (3)
  - Anxiety [None]
  - Irritability [None]
  - Depression [None]

NARRATIVE: CASE EVENT DATE: 20220120
